FAERS Safety Report 20176624 (Version 1)
Quarter: 2021Q4

REPORT INFORMATION
  Report Type: Spontaneous
  Country: BR (occurrence: BR)
  Receive Date: 20211213
  Receipt Date: 20211213
  Transmission Date: 20220303
  Serious: Yes (Life-Threatening, Hospitalization, Other)
  Sender: FDA-Public Use
  Company Number: BR-ORGANON-O2112BRA001031

PATIENT
  Age: 62 Year
  Sex: Male

DRUGS (2)
  1. LOSARTAN POTASSIUM [Suspect]
     Active Substance: LOSARTAN POTASSIUM
     Indication: Blood pressure management
     Dosage: 50-100 MG/D
  2. CAPECITABINE\OXALIPLATIN [Suspect]
     Active Substance: CAPECITABINE\OXALIPLATIN
     Indication: Colorectal cancer
     Dosage: UNK

REACTIONS (1)
  - Enterocolitis [Unknown]
